FAERS Safety Report 11310839 (Version 1)
Quarter: 2015Q3

REPORT INFORMATION
  Report Type: Spontaneous
  Country: US (occurrence: US)
  Receive Date: 20150726
  Receipt Date: 20150726
  Transmission Date: 20151125
  Serious: No
  Sender: FDA-Public Use
  Company Number: US-009507513-1504USA002095

PATIENT
  Sex: Female

DRUGS (1)
  1. IMPLANON [Suspect]
     Active Substance: ETONOGESTREL
     Dosage: 1 ROD, ONCE EVERY 3 YEARS, ABOUT 4 YEARS AGO
     Dates: start: 201104

REACTIONS (2)
  - Incorrect drug administration duration [Unknown]
  - Medical device complication [Unknown]

NARRATIVE: CASE EVENT DATE: 20150401
